FAERS Safety Report 24813176 (Version 1)
Quarter: 2025Q1

REPORT INFORMATION
  Report Type: Spontaneous
  Country: AR (occurrence: AR)
  Receive Date: 20250107
  Receipt Date: 20250107
  Transmission Date: 20250409
  Serious: Yes (Other)
  Sender: TOLMAR
  Company Number: AR-TOLMAR, INC.-24AR055341

PATIENT
  Age: 57 Year
  Sex: Male

DRUGS (11)
  1. ELIGARD [Suspect]
     Active Substance: LEUPROLIDE ACETATE
     Indication: HER2 positive salivary gland cancer
     Dosage: 7.5 MILLIGRAM, Q 1 MONTH
  2. ELIGARD [Suspect]
     Active Substance: LEUPROLIDE ACETATE
     Dosage: 7.5 MILLIGRAM, Q 1 MONTH
  3. ELIGARD [Suspect]
     Active Substance: LEUPROLIDE ACETATE
     Dosage: 7.5 MILLIGRAM, Q 1 MONTH
  4. ELIGARD [Suspect]
     Active Substance: LEUPROLIDE ACETATE
     Indication: HER2 positive salivary gland cancer
  5. PACLITAXEL [Suspect]
     Active Substance: PACLITAXEL
     Indication: HER2 positive salivary gland cancer
  6. TRASTUZUMAB [Suspect]
     Active Substance: TRASTUZUMAB
     Indication: HER2 positive salivary gland cancer
  7. BICALUTAMIDE [Suspect]
     Active Substance: BICALUTAMIDE
     Indication: HER2 positive salivary gland cancer
     Dosage: 50 MILLIGRAM, QD
  8. ADO-TRASTUZUMAB EMTANSINE [Suspect]
     Active Substance: ADO-TRASTUZUMAB EMTANSINE
     Indication: HER2 positive salivary gland cancer
  9. ABIRATERONE [Suspect]
     Active Substance: ABIRATERONE
     Indication: HER2 positive salivary gland cancer
     Dosage: 1000 MILLIGRAM, QD
  10. PREDNISONE [Suspect]
     Active Substance: PREDNISONE
     Indication: HER2 positive salivary gland cancer
  11. ZOLEDRONIC ACID [Concomitant]
     Active Substance: ZOLEDRONIC ACID
     Indication: Product used for unknown indication
     Dosage: 4 MILLIGRAM, Q 1 MONTH

REACTIONS (3)
  - Disease progression [Unknown]
  - Therapy partial responder [Unknown]
  - Off label use [Unknown]
